FAERS Safety Report 19450015 (Version 1)
Quarter: 2021Q2

REPORT INFORMATION
  Report Type: Spontaneous
  Country: JP (occurrence: JP)
  Receive Date: 20210622
  Receipt Date: 20210622
  Transmission Date: 20210717
  Serious: Yes (Hospitalization)
  Sender: FDA-Public Use
  Company Number: JP-DSJP-DSJ-2016-125727AA

PATIENT
  Age: 32 Year
  Sex: Female

DRUGS (1)
  1. OLMETEC [Suspect]
     Active Substance: OLMESARTAN MEDOXOMIL
     Indication: MOYAMOYA DISEASE
     Dosage: 20MG/DAY
     Route: 048

REACTIONS (3)
  - Contraindicated product administered [Unknown]
  - Oligohydramnios [Not Recovered/Not Resolved]
  - Maternal exposure during pregnancy [Unknown]
